FAERS Safety Report 12522953 (Version 1)
Quarter: 2016Q3

REPORT INFORMATION
  Report Type: Spontaneous
  Country: US (occurrence: US)
  Receive Date: 20160701
  Receipt Date: 20160701
  Transmission Date: 20161109
  Serious: Yes (Other)
  Sender: FDA-Public Use
  Company Number: US-009507513-1606USA011058

PATIENT
  Sex: Female

DRUGS (1)
  1. IMPLANON [Suspect]
     Active Substance: ETONOGESTREL
     Dosage: IMPLANT IN LEFT ARM/3 YEAR IMPLANT
     Route: 059

REACTIONS (7)
  - Amenorrhoea [Recovered/Resolved]
  - Mood swings [Unknown]
  - Muscle spasms [Unknown]
  - Incorrect drug administration duration [Unknown]
  - Thrombosis [Unknown]
  - Headache [Unknown]
  - Menometrorrhagia [Unknown]

NARRATIVE: CASE EVENT DATE: 20130901
